FAERS Safety Report 9026684 (Version 1)
Quarter: 2013Q1

REPORT INFORMATION
  Report Type: Spontaneous
  Country: PL (occurrence: PL)
  Receive Date: 20130123
  Receipt Date: 20130123
  Transmission Date: 20140127
  Serious: Yes (Death)
  Sender: FDA-Public Use
  Company Number: PL-BAXTER-2013BAX001927

PATIENT
  Age: 63 Year
  Sex: Male

DRUGS (2)
  1. DIANEAL PD4 (GLUKOZA 1,36%) ZESTAW DO DIALIZY OTRZEWNOWEJ [Suspect]
     Indication: PERITONEAL DIALYSIS
     Route: 033
  2. EXTRANEAL ZESTAW DO DIALIZY OTRZEWNOWEJ [Suspect]
     Indication: PERITONEAL DIALYSIS
     Route: 033

REACTIONS (1)
  - Cardiovascular insufficiency [Fatal]
